FAERS Safety Report 5930272-3 (Version None)
Quarter: 2008Q4

REPORT INFORMATION
  Report Type: 
  Country: None (occurrence: None)
  Receive Date: 20081024
  Receipt Date: 20081014
  Transmission Date: 20090506
  Serious: Yes (Hospitalization)
  Sender: FDA-Public Use
  Company Number: FR-PFIZER INC-2008088029

PATIENT
  Age: 43 Year
  Sex: Female

DRUGS (2)
  1. CHAMPIX [Suspect]
     Dates: start: 20080912, end: 20080101
  2. ACOMPLIA [Concomitant]

REACTIONS (1)
  - PERSECUTORY DELUSION [None]
